FAERS Safety Report 6047368-0 (Version None)
Quarter: 2009Q1

REPORT INFORMATION
  Report Type: 
  Country: None (occurrence: None)
  Receive Date: 20090122
  Receipt Date: 20090112
  Transmission Date: 20090719
  Serious: Yes (Hospitalization)
  Sender: FDA-Public Use
  Company Number: US-MERCK-0304USA00015

PATIENT
  Sex: Female

DRUGS (5)
  1. FOSAMAX [Suspect]
     Indication: OSTEOPOROSIS
     Route: 048
     Dates: end: 20010101
  2. FOSAMAX [Suspect]
     Route: 048
     Dates: start: 20010101
  3. CALCIUM (UNSPECIFIED) [Concomitant]
     Route: 065
  4. PRILOSEC [Concomitant]
     Route: 048
  5. FOSAMAX [Suspect]
     Route: 048
     Dates: start: 20081201, end: 20081201

REACTIONS (7)
  - ABDOMINAL DISCOMFORT [None]
  - ARTHRITIS [None]
  - ARTHROPATHY [None]
  - DIARRHOEA [None]
  - GASTROOESOPHAGEAL REFLUX DISEASE [None]
  - MUSCLE SPASMS [None]
  - PAIN [None]
